FAERS Safety Report 11814302 (Version 1)
Quarter: 2015Q4

REPORT INFORMATION
  Report Type: Spontaneous
  Country: DE (occurrence: DE)
  Receive Date: 20151209
  Receipt Date: 20151209
  Transmission Date: 20160305
  Serious: Yes (Life-Threatening)
  Sender: FDA-Public Use
  Company Number: DE-BAYER-2015-452583

PATIENT
  Age: 37 Year
  Sex: Female
  Weight: 60 kg

DRUGS (6)
  1. ASS RATIOPHARM [Suspect]
     Active Substance: ASPIRIN
     Indication: SURGERY
  2. ASS RATIOPHARM [Suspect]
     Active Substance: ASPIRIN
     Indication: CEREBROVASCULAR ACCIDENT
     Dosage: 100 MG, UNK
     Route: 048
     Dates: start: 201408, end: 201412
  3. ASPIRIN. [Suspect]
     Active Substance: ASPIRIN
     Indication: SURGERY
  4. CLOPIDOGREL [Concomitant]
     Active Substance: CLOPIDOGREL BISULFATE
     Indication: SURGERY
     Dosage: UNK
     Dates: start: 201509
  5. CLOPIDOGREL [Concomitant]
     Active Substance: CLOPIDOGREL BISULFATE
     Indication: SURGERY
     Dosage: 75 MG, UNK
     Dates: start: 20150309, end: 20150610
  6. ASPIRIN. [Suspect]
     Active Substance: ASPIRIN
     Indication: CEREBROVASCULAR ACCIDENT
     Dosage: 100 MG, QD
     Route: 048
     Dates: start: 201412, end: 201509

REACTIONS (2)
  - Blood glucose fluctuation [Recovered/Resolved]
  - Hypoglycaemia [Recovered/Resolved]

NARRATIVE: CASE EVENT DATE: 201408
